FAERS Safety Report 13832953 (Version 3)
Quarter: 2017Q4

REPORT INFORMATION
  Report Type: Spontaneous
  Country: US (occurrence: US)
  Receive Date: 20170803
  Receipt Date: 20171127
  Transmission Date: 20180320
  Serious: Yes (Other)
  Sender: FDA-Public Use
  Company Number: US-PFIZER INC-2017332657

PATIENT
  Age: 61 Year
  Sex: Female
  Weight: 58.97 kg

DRUGS (2)
  1. XELJANZ [Suspect]
     Active Substance: TOFACITINIB CITRATE
     Dosage: 5 MG, 2X/DAY
     Route: 048
     Dates: end: 20170428
  2. XELJANZ [Suspect]
     Active Substance: TOFACITINIB CITRATE
     Indication: RHEUMATOID ARTHRITIS
     Dosage: 5 MG, 2X/DAY
     Route: 048
     Dates: start: 20151215

REACTIONS (7)
  - Infection [Recovered/Resolved]
  - Pyrexia [Recovered/Resolved]
  - Organising pneumonia [Recovered/Resolved]
  - Cough [Recovered/Resolved]
  - Oropharyngeal pain [Recovered/Resolved]
  - Lung disorder [Recovered/Resolved]
  - Pulmonary cavitation [Recovered/Resolved]

NARRATIVE: CASE EVENT DATE: 20170323
